FAERS Safety Report 6864238-6 (Version None)
Quarter: 2010Q3

REPORT INFORMATION
  Report Type: 
  Country: None (occurrence: None)
  Receive Date: 20100721
  Receipt Date: 20100714
  Transmission Date: 20110219
  Serious: Yes (Hospitalization)
  Sender: FDA-Public Use
  Company Number: IT-MERCK-1007ITA00029

PATIENT
  Age: 21 Year
  Sex: Male

DRUGS (7)
  1. SINGULAIR [Suspect]
     Indication: ASTHMA
     Route: 048
     Dates: start: 20080901, end: 20100430
  2. ERDOSTEINE [Concomitant]
     Route: 048
  3. THEOPHYLLINE [Concomitant]
     Route: 048
  4. AMOXICILLIN [Concomitant]
     Route: 048
  5. CEFOTAXIME SODIUM [Concomitant]
     Route: 048
  6. NUTRITIONAL SUPPLEMENTS [Concomitant]
     Route: 048
  7. CORTICOSTEROIDS (UNSPECIFIED) [Suspect]
     Route: 048

REACTIONS (5)
  - ALLERGIC GRANULOMATOUS ANGIITIS [None]
  - ASTHMA [None]
  - DYSPNOEA [None]
  - PURPURA [None]
  - PYREXIA [None]
